FAERS Safety Report 4993273-8 (Version None)
Quarter: 2006Q1

REPORT INFORMATION
  Report Type: 
  Country: None (occurrence: None)
  Receive Date: 20060314
  Receipt Date: 20050623
  Transmission Date: 20060701
  Serious: Yes (Other)
  Sender: FDA-Public Use
  Company Number: 200512187BCC

PATIENT
  Age: 65 Year
  Sex: Male
  Weight: 88.4514 kg

DRUGS (10)
  1. ALEVE (CAPLET) [Suspect]
     Indication: OSTEOARTHRITIS
     Dosage: 220 MG, QD, ORAL
     Route: 048
     Dates: start: 20050422, end: 20050522
  2. NORVASC [Concomitant]
  3. LISINOPRIL [Concomitant]
  4. ECOTRIN [Concomitant]
  5. LIPITOR [Concomitant]
  6. PAXIL [Concomitant]
  7. XANAX [Concomitant]
  8. CENTRUM [Concomitant]
  9. ASCORBIC ACID [Concomitant]
  10. VITAMIN E [Concomitant]

REACTIONS (2)
  - COAGULOPATHY [None]
  - PLATELET COUNT DECREASED [None]
